FAERS Safety Report 8032238-9 (Version None)
Quarter: 2012Q1

REPORT INFORMATION
  Report Type: 
  Country: None (occurrence: None)
  Receive Date: 20120110
  Receipt Date: 20111230
  Transmission Date: 20120608
  Serious: No
  Sender: FDA-Public Use
  Company Number: US-BIOGENIDEC-2012BI000170

PATIENT
  Sex: Male

DRUGS (2)
  1. TYSABRI [Suspect]
     Indication: MULTIPLE SCLEROSIS
     Route: 042
     Dates: start: 20110505
  2. TYSABRI [Suspect]
     Route: 042
     Dates: start: 20091103, end: 20101007

REACTIONS (7)
  - HEART RATE INCREASED [None]
  - LIGAMENT SPRAIN [None]
  - MALAISE [None]
  - JOINT DISLOCATION [None]
  - MULTIPLE SCLEROSIS [None]
  - UPPER LIMB FRACTURE [None]
  - BACK DISORDER [None]
